FAERS Safety Report 10803724 (Version 1)
Quarter: 2015Q1

REPORT INFORMATION
  Report Type: Spontaneous
  Country: US (occurrence: US)
  Receive Date: 20150217
  Receipt Date: 20150217
  Transmission Date: 20150721
  Serious: Yes (Other)
  Sender: FDA-Public Use
  Company Number: US-GLAXOSMITHKLINE-US2015021194

PATIENT
  Age: 47 Year
  Sex: Female

DRUGS (2)
  1. MORPHINE [Concomitant]
     Active Substance: MORPHINE
  2. VENTOLIN [Suspect]
     Active Substance: ALBUTEROL SULFATE
     Indication: RESPIRATORY TRACT OEDEMA
     Dosage: UNK, SINGLE
     Route: 055
     Dates: start: 20150128, end: 20150128

REACTIONS (2)
  - Anaphylactic shock [Not Recovered/Not Resolved]
  - Lip blister [Unknown]

NARRATIVE: CASE EVENT DATE: 20150128
